FAERS Safety Report 4721398-0 (Version None)
Quarter: 2005Q3

REPORT INFORMATION
  Report Type: 
  Country: None (occurrence: None)
  Receive Date: 20050721
  Receipt Date: 20040809
  Transmission Date: 20060218
  Serious: No
  Sender: FDA-Public Use
  Company Number: US-BRISTOL-MYERS SQUIBB COMPANY-12664777

PATIENT
  Age: 70 Year
  Sex: Female
  Weight: 48 kg

DRUGS (1)
  1. COUMADIN [Suspect]
     Dosage: 5MG ALTERNATING WITH 10MG
     Route: 048
     Dates: start: 20020101

REACTIONS (2)
  - LETHARGY [None]
  - PALLOR [None]
